FAERS Safety Report 4284621-5 (Version None)
Quarter: 2004Q1

REPORT INFORMATION
  Report Type: 
  Country: None (occurrence: None)
  Receive Date: 20040130
  Receipt Date: 20040112
  Transmission Date: 20041129
  Serious: Yes (Life-Threatening, Hospitalization)
  Sender: FDA-Public Use
  Company Number: EWC031237507

PATIENT
  Age: 51 Year
  Sex: Male
  Weight: 39 kg

DRUGS (4)
  1. GEMCITABINE HYDROCHLORIDE-IV (GEMCITABINE) [Suspect]
     Indication: NON-SMALL CELL LUNG CANCER
     Dosage: 1600 MG/2 OTHER
     Dates: start: 20030429, end: 20031121
  2. CISPLATIN [Concomitant]
  3. CETRIZIN (CEFATRIZINE PROPYLENGLYCOLATE SULFATE) [Concomitant]
  4. CODEINE PHOSPHATE [Concomitant]

REACTIONS (3)
  - CARDIAC TAMPONADE [None]
  - CARDIOMEGALY [None]
  - PLEURAL EFFUSION [None]
